FAERS Safety Report 5297643-2 (Version None)
Quarter: 2007Q2

REPORT INFORMATION
  Report Type: 
  Country: None (occurrence: None)
  Receive Date: 20070409
  Receipt Date: 20070326
  Transmission Date: 20071010
  Serious: Yes (Hospitalization, Other)
  Sender: FDA-Public Use
  Company Number: 15835

PATIENT
  Age: 37 Year
  Sex: Female
  Weight: 94 kg

DRUGS (8)
  1. METHOTREXATE [Suspect]
     Indication: IMMUNOSUPPRESSION
     Dosage: 15 MG WEEKLY
  2. REMICADE [Suspect]
     Indication: RHEUMATOID ARTHRITIS
     Dosage: 285 MG OTH IV
     Route: 042
     Dates: start: 20030127, end: 20060313
  3. AMPICILLIN [Concomitant]
  4. DICLOFENAC [Concomitant]
  5. FOLIC ACID [Concomitant]
  6. TRAMADOL HCL [Concomitant]
  7. ORAL CONTRACEPTIVE [Concomitant]
  8. FLOXACILLIN SODIUM [Concomitant]

REACTIONS (4)
  - EXTRAVASATION [None]
  - INDURATION [None]
  - STAPHYLOCOCCAL INFECTION [None]
  - SUBCUTANEOUS ABSCESS [None]
